FAERS Safety Report 13479334 (Version 4)
Quarter: 2018Q1

REPORT INFORMATION
  Report Type: Report from Study
  Country: US (occurrence: US)
  Receive Date: 20170424
  Receipt Date: 20180117
  Transmission Date: 20180508
  Serious: No
  Sender: FDA-Public Use
  Company Number: US-AMGEN-USASL2017027837

PATIENT
  Age: 55 Year
  Sex: Female
  Weight: 62.59 kg

DRUGS (1)
  1. REPATHA [Suspect]
     Active Substance: EVOLOCUMAB
     Indication: TYPE IIA HYPERLIPIDAEMIA
     Dosage: 140 MG, Q2WK
     Route: 058
     Dates: start: 20170111

REACTIONS (4)
  - Dry mouth [Recovered/Resolved]
  - Injection site discomfort [Unknown]
  - Malaise [Unknown]
  - Influenza [Unknown]
